FAERS Safety Report 6849601-1 (Version None)
Quarter: 2010Q3

REPORT INFORMATION
  Report Type: 
  Country: None (occurrence: None)
  Receive Date: 20100716
  Receipt Date: 20071003
  Transmission Date: 20110219
  Serious: No
  Sender: FDA-Public Use
  Company Number: US-PFIZER INC-2007083409

PATIENT
  Sex: Female

DRUGS (37)
  1. CHANTIX [Suspect]
     Indication: SMOKING CESSATION THERAPY
     Dates: start: 20070927
  2. ADVAIR DISKUS 100/50 [Concomitant]
  3. MONTELUKAST SODIUM [Concomitant]
  4. PREVACID [Concomitant]
  5. PREVACID [Concomitant]
  6. PREDNISOLONE [Concomitant]
  7. PREDNISOLONE [Concomitant]
  8. REGLAN [Concomitant]
  9. REGLAN [Concomitant]
  10. LOPID [Concomitant]
  11. LOPID [Concomitant]
  12. CELEBREX [Concomitant]
  13. CELEBREX [Concomitant]
  14. NEURONTIN [Concomitant]
  15. NEURONTIN [Concomitant]
  16. LANTUS [Concomitant]
  17. LANTUS [Concomitant]
  18. XOPENEX [Concomitant]
  19. XOPENEX [Concomitant]
  20. DIGOXIN [Concomitant]
  21. DIGOXIN [Concomitant]
  22. ACETYLSALICYLIC ACID [Concomitant]
  23. ACETYLSALICYLIC ACID [Concomitant]
  24. GLIPIZIDE [Concomitant]
  25. GLIPIZIDE [Concomitant]
  26. METFORMIN HCL [Concomitant]
  27. METFORMIN HCL [Concomitant]
  28. ACTOS [Concomitant]
  29. ACTOS [Concomitant]
  30. LIPITOR [Concomitant]
  31. LIPITOR [Concomitant]
  32. NORVASC [Concomitant]
  33. NORVASC [Concomitant]
  34. WELLBUTRIN [Concomitant]
  35. WELLBUTRIN [Concomitant]
  36. EFFEXOR [Concomitant]
  37. ATIVAN [Concomitant]

REACTIONS (2)
  - CHILLS [None]
  - HYPERHIDROSIS [None]
